FAERS Safety Report 5313969-8 (Version None)
Quarter: 2007Q2

REPORT INFORMATION
  Report Type: 
  Country: None (occurrence: None)
  Receive Date: 20070501
  Receipt Date: 20070419
  Transmission Date: 20071010
  Serious: Yes (Other)
  Sender: FDA-Public Use
  Company Number: US-PFIZER INC-2007002064

PATIENT
  Sex: Female

DRUGS (6)
  1. NEURONTIN [Suspect]
     Indication: NECK PAIN
  2. LYRICA [Suspect]
     Indication: NECK PAIN
  3. ESTRADERM [Concomitant]
  4. CYCLOBENZAPRINE HCL [Concomitant]
  5. IBUPROFEN [Concomitant]
  6. PERCOCET [Concomitant]

REACTIONS (12)
  - DEPRESSION [None]
  - DRUG INEFFECTIVE [None]
  - DRUG INTOLERANCE [None]
  - DRUG SCREEN FALSE POSITIVE [None]
  - FEELING ABNORMAL [None]
  - HEADACHE [None]
  - INCREASED TENDENCY TO BRUISE [None]
  - INTERVERTEBRAL DISC DEGENERATION [None]
  - JOINT SWELLING [None]
  - LIMB INJURY [None]
  - URINARY INCONTINENCE [None]
  - WEIGHT INCREASED [None]
